FAERS Safety Report 12835146 (Version 2)
Quarter: 2016Q4

REPORT INFORMATION
  Report Type: Spontaneous
  Country: US (occurrence: US)
  Receive Date: 20161011
  Receipt Date: 20161011
  Transmission Date: 20170207
  Serious: No
  Sender: FDA-Public Use
  Company Number: US-009507513-1609USA010297

PATIENT
  Age: 71 Year
  Sex: Female
  Weight: 215 kg

DRUGS (2)
  1. BELSOMRA [Suspect]
     Active Substance: SUVOREXANT
     Indication: SLEEP DISORDER
     Dosage: 20 MG TABLET PER DAY BEFORE BED
     Route: 048
     Dates: start: 2016
  2. BELSOMRA [Suspect]
     Active Substance: SUVOREXANT
     Dosage: 10 MG, HS
     Route: 048
     Dates: start: 201601, end: 2016

REACTIONS (3)
  - Sleep disorder [Unknown]
  - Abnormal dreams [Unknown]
  - Hyperhidrosis [Unknown]

NARRATIVE: CASE EVENT DATE: 201606
